FAERS Safety Report 11197833 (Version 1)
Quarter: 2015Q2

REPORT INFORMATION
  Report Type: Spontaneous
  Country: US (occurrence: US)
  Receive Date: 20150617
  Receipt Date: 20150617
  Transmission Date: 20150821
  Serious: No
  Sender: FDA-Public Use
  Company Number: US-TAKEDA-2014TUS010427

PATIENT
  Age: 68 Year
  Sex: Male
  Weight: 68.93 kg

DRUGS (9)
  1. ULORIC [Suspect]
     Active Substance: FEBUXOSTAT
     Indication: GOUT
     Dosage: 40 MG, QD
     Route: 048
     Dates: start: 20141009
  2. EVEROLIMUS [Concomitant]
     Active Substance: EVEROLIMUS
     Indication: NEOPLASM MALIGNANT
     Dosage: UNK
  3. SANDOSTATIN [Concomitant]
     Active Substance: OCTREOTIDE ACETATE
     Indication: CARCINOID SYNDROME
     Dosage: UNK
  4. METOPROLOL [Concomitant]
     Active Substance: METOPROLOL
     Indication: HYPERTENSION
     Dosage: UNK
     Route: 048
  5. PREDNISONE. [Concomitant]
     Active Substance: PREDNISONE
     Indication: GOUT
     Dosage: 10 MG, QD
     Route: 048
  6. ALL OTHER THERAPEUTIC PRODUCTS [Concomitant]
     Active Substance: UNSPECIFIED INGREDIENT
     Indication: PAIN
     Dosage: 50 ?G, 1/WEEK
  7. FUROSEMIDE. [Concomitant]
     Active Substance: FUROSEMIDE
     Dosage: UNK
     Route: 048
  8. LISINOPRIL. [Concomitant]
     Active Substance: LISINOPRIL
     Indication: HYPERTENSION
     Dosage: UNK
     Route: 048
  9. CLONAZEPAM. [Concomitant]
     Active Substance: CLONAZEPAM
     Dosage: UNK
     Route: 048

REACTIONS (2)
  - Spinal pain [Not Recovered/Not Resolved]
  - Chest pain [Not Recovered/Not Resolved]

NARRATIVE: CASE EVENT DATE: 20141018
